FAERS Safety Report 8447032-4 (Version None)
Quarter: 2012Q2

REPORT INFORMATION
  Report Type: 
  Country: None (occurrence: None)
  Receive Date: 20120619
  Receipt Date: 20120613
  Transmission Date: 20120825
  Serious: Yes (Life-Threatening, Hospitalization, Other)
  Sender: FDA-Public Use
  Company Number: NL-GENZYME-CLOF-1002178

PATIENT
  Sex: Female
  Weight: 80 kg

DRUGS (6)
  1. EVOLTRA [Suspect]
     Indication: ACUTE MYELOID LEUKAEMIA
     Dosage: 19 MG, UNK
     Route: 042
     Dates: start: 20120507, end: 20120511
  2. AMPHOTERICIN B [Concomitant]
     Indication: ASPERGILLOSIS
     Dosage: UNK
     Route: 065
     Dates: start: 20120604, end: 20120605
  3. VANCOMYCIN [Concomitant]
     Indication: INFECTION
     Dosage: UNK
     Route: 065
     Dates: start: 20120525, end: 20120605
  4. AMSACRINE [Suspect]
     Indication: ACUTE MYELOID LEUKAEMIA
     Dosage: 225 MG, UNK
     Route: 042
     Dates: start: 20120510, end: 20120512
  5. MEROPENEM [Concomitant]
     Indication: INFECTION
     Dosage: UNK
     Route: 065
     Dates: start: 20120527, end: 20120605
  6. CYTARABINE [Suspect]
     Indication: ACUTE MYELOID LEUKAEMIA
     Dosage: 1900 MG, UNK
     Route: 042
     Dates: start: 20120507, end: 20120512

REACTIONS (3)
  - PNEUMONIA [None]
  - INFLUENZA [None]
  - RESPIRATORY FAILURE [None]
